FAERS Safety Report 15751147 (Version 1)
Quarter: 2018Q4

REPORT INFORMATION
  Report Type: Spontaneous
  Country: US (occurrence: US)
  Receive Date: 20181221
  Receipt Date: 20181221
  Transmission Date: 20190205
  Serious: No
  Sender: FDA-Public Use
  Company Number: US-THERAPEUTICSMD-2018TMD00194

PATIENT
  Sex: Female

DRUGS (1)
  1. IMVEXXY [Suspect]
     Active Substance: ESTRADIOL
     Dosage: UNK UNK, 1X/DAY
     Route: 067
     Dates: start: 20180920

REACTIONS (2)
  - Accidental exposure to product [Recovered/Resolved]
  - Malabsorption from application site [Not Recovered/Not Resolved]

NARRATIVE: CASE EVENT DATE: 20180920
